FAERS Safety Report 8949554 (Version 2)
Quarter: 2013Q1

REPORT INFORMATION
  Report Type: Spontaneous
  Country: DE (occurrence: DE)
  Receive Date: 20121206
  Receipt Date: 20130304
  Transmission Date: 20140127
  Serious: Yes (Other)
  Sender: FDA-Public Use
  Company Number: DE-ELI_LILLY_AND_COMPANY-DE201211007579

PATIENT
  Age: 72 Year
  Sex: Female

DRUGS (4)
  1. FORSTEO [Suspect]
     Indication: OSTEOPOROSIS
     Dosage: UNK, QD
     Route: 058
     Dates: start: 20110831, end: 201212
  2. VIGANTOLETTEN [Concomitant]
     Dosage: UNK, UNKNOWN
     Route: 065
  3. ASS [Concomitant]
     Dosage: UNK, UNKNOWN
     Route: 065
  4. OMEP [Concomitant]
     Dosage: UNK, UNKNOWN
     Route: 065

REACTIONS (2)
  - Lung neoplasm malignant [Not Recovered/Not Resolved]
  - Pneumonia [Unknown]
